FAERS Safety Report 22031721 (Version 1)
Quarter: 2023Q1

REPORT INFORMATION
  Report Type: Spontaneous
  Country: US (occurrence: US)
  Receive Date: 20230224
  Receipt Date: 20230224
  Transmission Date: 20230417
  Serious: No
  Sender: FDA-Public Use
  Company Number: US-TEVA-2023-US-2855028

PATIENT
  Age: 78 Year
  Sex: Female

DRUGS (1)
  1. SOTALOL HYDROCHLORIDE [Suspect]
     Active Substance: SOTALOL HYDROCHLORIDE
     Indication: Heart rate irregular
     Dosage: ONE IN THE MORNING, ONE IN THE EVENING
     Route: 065
     Dates: start: 2018

REACTIONS (2)
  - Gastrointestinal disorder [Not Recovered/Not Resolved]
  - Urge incontinence [Unknown]
